FAERS Safety Report 25745693 (Version 3)
Quarter: 2025Q3

REPORT INFORMATION
  Report Type: Spontaneous
  Country: EU (occurrence: EU)
  Receive Date: 20250901
  Receipt Date: 20250922
  Transmission Date: 20251020
  Serious: Yes (Hospitalization)
  Sender: ORCHARD THERAPEUTICS EUROPE
  Company Number: EU-Orchard Therapeutics-2183558

PATIENT
  Age: 12 Month
  Sex: Female

DRUGS (10)
  1. LENMELDY [Suspect]
     Active Substance: ATIDARSAGENE AUTOTEMCEL
     Indication: Metachromatic leukodystrophy
     Dates: start: 20250627, end: 20250627
  2. BUSULFAN [Suspect]
     Active Substance: BUSULFAN
     Dates: start: 20250622, end: 20250625
  3. Sylimarin [Concomitant]
     Dates: start: 20250626
  4. PREDNISONE [Concomitant]
     Active Substance: PREDNISONE
     Dates: start: 20250710
  5. OMEPRAZOLE [Concomitant]
     Active Substance: OMEPRAZOLE
     Dates: start: 20250621
  6. Immunoglobulins [Concomitant]
     Dates: start: 20250626
  7. FLUCONAZOLE [Concomitant]
     Active Substance: FLUCONAZOLE
     Dates: start: 20250722, end: 20250805
  8. Cholecalciferol drops [Concomitant]
     Dates: start: 20240810
  9. FOLIC ACID [Concomitant]
     Active Substance: FOLIC ACID
     Dates: start: 20250630
  10. ACYCLOVIR [Concomitant]
     Active Substance: ACYCLOVIR
     Dates: start: 20250617

REACTIONS (2)
  - Thrombocytopenia [Not Recovered/Not Resolved]
  - Cerebral haemorrhage [Not Recovered/Not Resolved]

NARRATIVE: CASE EVENT DATE: 20250816
